FAERS Safety Report 8619491-5 (Version None)
Quarter: 2012Q3

REPORT INFORMATION
  Report Type: 
  Country: None (occurrence: None)
  Receive Date: 20120824
  Receipt Date: 20120327
  Transmission Date: 20120928
  Serious: No
  Sender: FDA-Public Use
  Company Number: US-ASTRAZENECA-2012SE20437

PATIENT
  Age: 48 Year
  Sex: Male
  Weight: 113.4 kg

DRUGS (6)
  1. SINGULAIR [Concomitant]
     Indication: CHRONIC OBSTRUCTIVE PULMONARY DISEASE
  2. SINGULAIR [Concomitant]
     Indication: ASTHMA
  3. SYMBICORT [Suspect]
     Indication: CHRONIC OBSTRUCTIVE PULMONARY DISEASE
     Dosage: 2 PUFFS BID
     Route: 055
  4. ZYRTEX OTC [Concomitant]
     Indication: MULTIPLE ALLERGIES
  5. NEXIUM [Suspect]
     Indication: ABDOMINAL DISTENSION
     Route: 048
     Dates: start: 20120201
  6. NASONEX [Concomitant]
     Indication: HYPERSENSITIVITY
     Dosage: BID

REACTIONS (4)
  - PAIN IN EXTREMITY [None]
  - OFF LABEL USE [None]
  - ARTHRALGIA [None]
  - HYPERSENSITIVITY [None]
